FAERS Safety Report 9477431 (Version 1)
Quarter: 2013Q3

REPORT INFORMATION
  Report Type: Spontaneous
  Country: US (occurrence: US)
  Receive Date: 20130826
  Receipt Date: 20130826
  Transmission Date: 20140515
  Serious: Yes (Other)
  Sender: FDA-Public Use
  Company Number: US-UCBSA-095839

PATIENT
  Sex: 0

DRUGS (1)
  1. CIMZIA [Suspect]
     Indication: JUVENILE IDIOPATHIC ARTHRITIS
     Dosage: DOSE: UNKNOWN

REACTIONS (2)
  - Autoimmune pancreatitis [Recovering/Resolving]
  - Crohn^s disease [Recovering/Resolving]
